FAERS Safety Report 7364808-5 (Version None)
Quarter: 2011Q1

REPORT INFORMATION
  Report Type: 
  Country: None (occurrence: None)
  Receive Date: 20110321
  Receipt Date: 20110309
  Transmission Date: 20110831
  Serious: Yes (Other)
  Sender: FDA-Public Use
  Company Number: PHHO2011DE04421

PATIENT
  Sex: Female

DRUGS (1)
  1. FTY 720 [Suspect]
     Indication: MULTIPLE SCLEROSIS
     Dosage: UNK

REACTIONS (1)
  - BASAL CELL CARCINOMA [None]
